FAERS Safety Report 18435873 (Version 1)
Quarter: 2020Q4

REPORT INFORMATION
  Report Type: Spontaneous
  Country: US (occurrence: US)
  Receive Date: 20201028
  Receipt Date: 20201028
  Transmission Date: 20210114
  Serious: No
  Sender: FDA-Public Use
  Company Number: None

PATIENT
  Age: 79 Year
  Sex: Male

DRUGS (1)
  1. EVEROLIMUS TAB 5MG [Suspect]
     Active Substance: EVEROLIMUS
     Route: 048
     Dates: start: 202009

REACTIONS (4)
  - Lip swelling [None]
  - Pharyngeal swelling [None]
  - Therapy interrupted [None]
  - Testicular swelling [None]

NARRATIVE: CASE EVENT DATE: 20200924
